FAERS Safety Report 13347307 (Version 1)
Quarter: 2017Q1

REPORT INFORMATION
  Report Type: Report from Study
  Country: DE (occurrence: DE)
  Receive Date: 20170317
  Receipt Date: 20170317
  Transmission Date: 20170428
  Serious: Yes (Hospitalization, Other)
  Sender: FDA-Public Use
  Company Number: DE-ELI_LILLY_AND_COMPANY-19530484

PATIENT
  Age: 77 Year
  Sex: Female
  Weight: 58 kg

DRUGS (9)
  1. CETUXIMAB. [Suspect]
     Active Substance: CETUXIMAB
     Dosage: 250 MG/M2 WEEKLY (1/W)
     Route: 042
     Dates: start: 20130228, end: 20130314
  2. MOVICOL [Concomitant]
     Active Substance: POLYETHYLENE GLYCOL 3350\POTASSIUM CHLORIDE\SODIUM BICARBONATE\SODIUM CHLORIDE
     Indication: CONSTIPATION
     Dosage: 1 DF, UNK
     Dates: start: 20130314, end: 20130316
  3. NOVALGIN [Concomitant]
     Active Substance: METAMIZOLE SODIUM
     Indication: STOMATITIS
     Dosage: UNK
     Dates: start: 20130305, end: 20130321
  4. PANTOZOL [Concomitant]
     Active Substance: PANTOPRAZOLE SODIUM
     Indication: PROPHYLAXIS
     Dosage: UNK
     Dates: start: 20130220
  5. STAPHYLEX                          /00239102/ [Concomitant]
     Dosage: 2G
     Dates: start: 20130403, end: 20130410
  6. VIGAMOX [Concomitant]
     Active Substance: MOXIFLOXACIN HYDROCHLORIDE
     Indication: CONJUNCTIVITIS
     Dosage: UNK
     Dates: start: 20130321, end: 20130418
  7. CETUXIMAB. [Suspect]
     Active Substance: CETUXIMAB
     Indication: SQUAMOUS CELL CARCINOMA OF HEAD AND NECK
     Dosage: 660 MG, WEEKLY (1/W)
     Route: 042
     Dates: start: 20130221, end: 20130221
  8. STAPHYLEX                          /00239102/ [Concomitant]
     Indication: DERMATITIS
     Dosage: 2 G, UNK
     Dates: start: 20130320, end: 20130326
  9. VALORON                            /00205402/ [Concomitant]
     Active Substance: TILIDINE HYDROCHLORIDE
     Indication: DERMATITIS
     Dosage: 20 GTT, UNK
     Dates: start: 20130321, end: 20130402

REACTIONS (1)
  - Dysphagia [Recovered/Resolved]

NARRATIVE: CASE EVENT DATE: 20130402
